FAERS Safety Report 9466360 (Version 2)
Quarter: 2013Q3

REPORT INFORMATION
  Report Type: Spontaneous
  Country: US (occurrence: US)
  Receive Date: 20130820
  Receipt Date: 20130820
  Transmission Date: 20140515
  Serious: No
  Sender: FDA-Public Use
  Company Number: US-009507513-1307USA015888

PATIENT
  Sex: Female
  Weight: 71.66 kg

DRUGS (3)
  1. MIRALAX [Suspect]
     Indication: CONSTIPATION
     Dosage: 8.5 G, QD
     Route: 048
  2. MIRALAX [Suspect]
     Indication: MEDICAL OBSERVATION
     Dosage: 17 G, QD
     Route: 048
  3. MIRALAX [Suspect]
     Dosage: 17 G, QD
     Route: 048

REACTIONS (5)
  - Unevaluable event [Unknown]
  - Underdose [Unknown]
  - Inappropriate schedule of drug administration [Unknown]
  - Drug effect delayed [Unknown]
  - Incorrect drug administration duration [Unknown]
